FAERS Safety Report 20584730 (Version 2)
Quarter: 2022Q2

REPORT INFORMATION
  Report Type: Report from Study
  Country: GB (occurrence: GB)
  Receive Date: 20220311
  Receipt Date: 20220524
  Transmission Date: 20220721
  Serious: Yes (Hospitalization)
  Sender: FDA-Public Use
  Company Number: GB-NOVARTISPH-NVSC2022GB055092

PATIENT
  Sex: Male

DRUGS (1)
  1. COSENTYX [Suspect]
     Active Substance: SECUKINUMAB
     Indication: Ankylosing spondylitis
     Dosage: 150 MG, QMO
     Route: 065
     Dates: start: 202110

REACTIONS (4)
  - Pain [Recovering/Resolving]
  - Fall [Recovering/Resolving]
  - Back injury [Recovering/Resolving]
  - Drug ineffective [Recovering/Resolving]
